FAERS Safety Report 10032012 (Version 1)
Quarter: 2014Q1

REPORT INFORMATION
  Report Type: Spontaneous
  Country: CA (occurrence: CA)
  Receive Date: 20140324
  Receipt Date: 20140324
  Transmission Date: 20141002
  Serious: Yes (Hospitalization, Other)
  Sender: FDA-Public Use
  Company Number: CA-BAXTER-2014BAX013904

PATIENT
  Age: 85 Year
  Sex: Male

DRUGS (6)
  1. EXTRANEAL [Suspect]
     Indication: RENAL FAILURE
     Route: 033
     Dates: start: 20140306, end: 20140310
  2. EXTRANEAL [Suspect]
     Indication: PERITONEAL DIALYSIS
     Route: 033
  3. PHYSIONEAL 40 GLUCOSE 1.36% SOLUTION FOR PERITONEAL DIALYSIS [Suspect]
     Indication: RENAL FAILURE
     Route: 033
  4. PHYSIONEAL 40 GLUCOSE 1.36% SOLUTION FOR PERITONEAL DIALYSIS [Suspect]
     Indication: PERITONEAL DIALYSIS
  5. PHYSIONEAL 40 GLUCOSE 2.27% SOLUTION FOR PERITONEAL DIALYSIS [Suspect]
     Indication: RENAL FAILURE
     Route: 033
  6. PHYSIONEAL 40 GLUCOSE 2.27% SOLUTION FOR PERITONEAL DIALYSIS [Suspect]
     Indication: PERITONEAL DIALYSIS

REACTIONS (5)
  - Peripheral circulatory failure [Recovered/Resolved]
  - Groin infection [Recovered/Resolved]
  - Colon cancer [Not Recovered/Not Resolved]
  - Infection [Unknown]
  - Fluid retention [Unknown]
